FAERS Safety Report 22027446 (Version 1)
Quarter: 2023Q1

REPORT INFORMATION
  Report Type: Spontaneous
  Country: US (occurrence: None)
  Receive Date: 20230223
  Receipt Date: 20230223
  Transmission Date: 20230418
  Serious: No
  Sender: FDA-Public Use
  Company Number: US-ROCHE-3210087

PATIENT
  Sex: Female

DRUGS (20)
  1. XOLAIR [Suspect]
     Active Substance: OMALIZUMAB
     Indication: Chronic spontaneous urticaria
     Route: 065
     Dates: start: 202207
  2. XOLAIR [Suspect]
     Active Substance: OMALIZUMAB
     Route: 065
     Dates: start: 202209
  3. XOLAIR [Suspect]
     Active Substance: OMALIZUMAB
     Route: 065
  4. XOLAIR [Suspect]
     Active Substance: OMALIZUMAB
     Route: 065
     Dates: start: 20220705
  5. XOLAIR [Suspect]
     Active Substance: OMALIZUMAB
     Route: 065
     Dates: start: 20221003
  6. XOLAIR [Suspect]
     Active Substance: OMALIZUMAB
     Route: 065
     Dates: start: 20220901
  7. XOLAIR [Suspect]
     Active Substance: OMALIZUMAB
     Route: 065
     Dates: start: 20220928
  8. XOLAIR [Suspect]
     Active Substance: OMALIZUMAB
     Route: 065
     Dates: start: 20221027
  9. ZYRTEC [Concomitant]
     Active Substance: CETIRIZINE HYDROCHLORIDE
  10. AZELASTINE [Concomitant]
     Active Substance: AZELASTINE
  11. CYCLOSPORINE [Concomitant]
     Active Substance: CYCLOSPORINE
     Dosage: EVERY NIGHT AT BED TIME
  12. CYCLOSPORINE [Concomitant]
     Active Substance: CYCLOSPORINE
     Dosage: FRIDAY AND SATURDAY
  13. DAPSONE [Concomitant]
     Active Substance: DAPSONE
  14. HYDROCHLOROTHIAZIDE [Concomitant]
     Active Substance: HYDROCHLOROTHIAZIDE
  15. LOSARTAN [Concomitant]
     Active Substance: LOSARTAN
  16. PREDNISONE [Concomitant]
     Active Substance: PREDNISONE
     Dosage: TWICE A DAY FOR 4-5 DAYS.
  17. PREDNISONE [Concomitant]
     Active Substance: PREDNISONE
     Dosage: ONCE DAILY
     Dates: start: 20221026
  18. MONTELUKAST [Concomitant]
     Active Substance: MONTELUKAST SODIUM
  19. IMITREX [Concomitant]
     Active Substance: SUMATRIPTAN SUCCINATE
  20. HYDROXYZINE [Concomitant]
     Active Substance: HYDROXYZINE HYDROCHLORIDE
     Dosage: EVERY NIGHT AT BED TIME

REACTIONS (2)
  - Urticaria [Unknown]
  - Off label use [Unknown]
